FAERS Safety Report 8869693 (Version 2)
Quarter: 2012Q4

REPORT INFORMATION
  Report Type: Report from Study
  Country: CA (occurrence: CA)
  Receive Date: 20121028
  Receipt Date: 20121119
  Transmission Date: 20130627
  Serious: Yes (Other)
  Sender: FDA-Public Use
  Company Number: CA-JNJFOC-20121009698

PATIENT
  Age: 50 Year
  Sex: Male
  Weight: 99 kg

DRUGS (7)
  1. REMICADE [Suspect]
     Indication: COLITIS ULCERATIVE
     Route: 042
     Dates: start: 20120511
  2. REMICADE [Suspect]
     Indication: COLITIS ULCERATIVE
     Route: 042
     Dates: start: 20120731
  3. REMICADE [Suspect]
     Indication: COLITIS ULCERATIVE
     Route: 042
     Dates: start: 20121016, end: 20121108
  4. REACTINE [Concomitant]
     Indication: PROPHYLAXIS
     Dosage: prior to hospital
     Route: 048
  5. TYLENOL [Concomitant]
     Indication: PROPHYLAXIS
     Route: 065
  6. SOLU CORTEF [Concomitant]
     Indication: PREMEDICATION
     Route: 065
  7. BENADRYL [Concomitant]
     Indication: PREMEDICATION
     Route: 065

REACTIONS (3)
  - Infusion related reaction [Not Recovered/Not Resolved]
  - Diarrhoea [Not Recovered/Not Resolved]
  - Rash [Not Recovered/Not Resolved]
